FAERS Safety Report 11646177 (Version 1)
Quarter: 2015Q4

REPORT INFORMATION
  Report Type: Spontaneous
  Country: US (occurrence: US)
  Receive Date: 20151020
  Receipt Date: 20151020
  Transmission Date: 20160304
  Serious: No
  Sender: FDA-Public Use
  Company Number: US-ROCHE-ITM201506IM018473

PATIENT
  Sex: Male

DRUGS (1)
  1. ESBRIET [Suspect]
     Active Substance: PIRFENIDONE
     Indication: IDIOPATHIC PULMONARY FIBROSIS
     Route: 048
     Dates: start: 20150327

REACTIONS (6)
  - Herpes zoster [Unknown]
  - Erythema [Unknown]
  - Rash erythematous [Unknown]
  - Pruritus [Unknown]
  - Photosensitivity reaction [Unknown]
  - Dyspepsia [Unknown]
